FAERS Safety Report 9528446 (Version 1)
Quarter: 2013Q1

REPORT INFORMATION
  Report Type: Spontaneous
  Country: US (occurrence: None)
  Receive Date: 20130329
  Receipt Date: 20130329
  Transmission Date: 20140127
  Serious: No
  Sender: FDA-Public Use
  Company Number: 1000043087

PATIENT
  Sex: Female

DRUGS (2)
  1. LINZESS [Suspect]
     Indication: IRRITABLE BOWEL SYNDROME
     Dosage: 290 MCG ( 290 MCG, 1 IN 1 D), ORAL
     Route: 048
     Dates: start: 201301
  2. VICODIN ( VICODIN) ( VICODIN) [Concomitant]

REACTIONS (10)
  - Ammonia increased [None]
  - Blood magnesium decreased [None]
  - Tremor [None]
  - Asthenia [None]
  - Dyspnoea [None]
  - Confusional state [None]
  - Diarrhoea [None]
  - Nausea [None]
  - Chest pain [None]
  - Dyspepsia [None]
